FAERS Safety Report 4943826-8 (Version None)
Quarter: 2006Q1

REPORT INFORMATION
  Report Type: 
  Country: None (occurrence: None)
  Receive Date: 20060310
  Receipt Date: 20060303
  Transmission Date: 20060701
  Serious: Yes (Hospitalization, Other)
  Sender: FDA-Public Use
  Company Number: 2006AL000615

PATIENT
  Age: 80 Year
  Sex: Female

DRUGS (1)
  1. NIFEDIPINE [Suspect]
     Indication: HYPERTENSION
     Dosage: 5 MG;X1;PO
     Route: 048

REACTIONS (10)
  - ASTHENIA [None]
  - BODY TEMPERATURE INCREASED [None]
  - BUNDLE BRANCH BLOCK RIGHT [None]
  - FAECAL INCONTINENCE [None]
  - HYPOREFLEXIA [None]
  - HYPOTENSION [None]
  - ISCHAEMIC STROKE [None]
  - PAIN [None]
  - PARAESTHESIA [None]
  - SPINAL CORD INFARCTION [None]
